FAERS Safety Report 7303671-5 (Version None)
Quarter: 2011Q1

REPORT INFORMATION
  Report Type: 
  Country: None (occurrence: None)
  Receive Date: 20110221
  Receipt Date: 20110211
  Transmission Date: 20110831
  Serious: Yes (Disabling)
  Sender: FDA-Public Use
  Company Number: US-SANOFI-AVENTIS-2011SA009367

PATIENT
  Sex: Male

DRUGS (3)
  1. LOVAZA [Suspect]
     Route: 048
  2. PLAVIX [Suspect]
     Dates: start: 20100101
  3. PLAVIX [Suspect]

REACTIONS (4)
  - ABDOMINAL DISCOMFORT [None]
  - DEPRESSION [None]
  - MYALGIA [None]
  - DIARRHOEA [None]
